FAERS Safety Report 15887101 (Version 9)
Quarter: 2019Q3

REPORT INFORMATION
  Report Type: Report from Study
  Country: BE (occurrence: BE)
  Receive Date: 20190130
  Receipt Date: 20190918
  Transmission Date: 20191004
  Serious: Yes (Hospitalization)
  Sender: FDA-Public Use
  Company Number: BE-ROCHE-2251146

PATIENT
  Age: 78 Year
  Sex: Male
  Weight: 81 kg

DRUGS (46)
  1. ATEZOLIZUMAB. [Suspect]
     Active Substance: ATEZOLIZUMAB
     Indication: B-CELL LYMPHOMA
     Dosage: DOSE OF MOST RECENT ATEZOLIZUMAB ADMINISTERED PRIOR TO AE ONSET: 1200 MG?DATE OF MOST RECENT DOSE OF
     Route: 042
     Dates: start: 20190117
  2. OMEPRAZOLE. [Concomitant]
     Active Substance: OMEPRAZOLE
     Indication: PROPHYLAXIS AGAINST GASTROINTESTINAL ULCER
     Route: 065
     Dates: start: 20181126
  3. PARACETAMOL [Concomitant]
     Active Substance: ACETAMINOPHEN
     Route: 065
     Dates: start: 20181227, end: 20181227
  4. LITICAN [ALIZAPRIDE HYDROCHLORIDE] [Concomitant]
     Indication: NAUSEA
     Route: 065
     Dates: start: 20181228, end: 20181228
  5. DENTIO [Concomitant]
     Route: 065
     Dates: start: 20190214, end: 20190214
  6. ACTOSOLV [Concomitant]
     Route: 065
     Dates: start: 20181227, end: 20181227
  7. DUOVENT [Concomitant]
     Active Substance: FENOTEROL HYDROBROMIDE
     Indication: DYSPNOEA
     Route: 065
     Dates: start: 201602
  8. RO7082859 (CD20/C3 T-CELL BISPECIFIC MAB) [Suspect]
     Active Substance: GLOFITAMAB
     Indication: B-CELL LYMPHOMA
     Dosage: DOSE OF MOST RECENT RO7082859 ADMINISTERED PRIOR TO AE ONSET: 1800 UG ?DATE OF MOST RECENT DOSE OF R
     Route: 042
     Dates: start: 20181227
  9. METFORMIN [Concomitant]
     Active Substance: METFORMIN HYDROCHLORIDE
     Indication: STEROID DIABETES
     Route: 065
     Dates: start: 20181126
  10. PARACETAMOL [Concomitant]
     Active Substance: ACETAMINOPHEN
     Indication: PREMEDICATION
     Route: 065
     Dates: start: 20190117, end: 20190117
  11. DENTIO [Concomitant]
     Route: 065
     Dates: start: 20190321
  12. TEMESTA [LORAZEPAM] [Concomitant]
     Active Substance: LORAZEPAM
     Indication: INSOMNIA
     Route: 065
     Dates: start: 20190412, end: 20190412
  13. MOVICOL [Concomitant]
     Active Substance: POLYETHYLENE GLYCOL 3350\POTASSIUM CHLORIDE\SODIUM BICARBONATE\SODIUM CHLORIDE
     Route: 065
     Dates: start: 20190105, end: 20190105
  14. LASIX [Concomitant]
     Active Substance: FUROSEMIDE
     Route: 065
     Dates: start: 20181229, end: 20181230
  15. SOLU-MEDROL [Concomitant]
     Active Substance: METHYLPREDNISOLONE SODIUM SUCCINATE
     Indication: PREMEDICATION
     Route: 065
     Dates: start: 20190117, end: 20190117
  16. TAVEGYL [Concomitant]
     Active Substance: CLEMASTINE FUMARATE
     Route: 065
     Dates: start: 20181227, end: 20181227
  17. TAVEGYL [Concomitant]
     Active Substance: CLEMASTINE FUMARATE
     Route: 065
     Dates: start: 20181220, end: 20181220
  18. BURINEX [Concomitant]
     Active Substance: BUMETANIDE
     Indication: FLUID RETENTION
     Route: 065
     Dates: start: 20181231, end: 20181231
  19. AMOXICILLIN;CLAVULANIC ACID [Concomitant]
     Active Substance: AMOXICILLIN\CLAVULANIC ACID
     Indication: PYREXIA
     Route: 065
     Dates: start: 20190102, end: 20190103
  20. DETRUSITOL [Concomitant]
     Active Substance: TOLTERODINE TARTRATE
     Indication: URINARY INCONTINENCE
     Route: 065
     Dates: start: 20181228
  21. MOVICOL [Concomitant]
     Active Substance: POLYETHYLENE GLYCOL 3350\POTASSIUM CHLORIDE\SODIUM BICARBONATE\SODIUM CHLORIDE
     Indication: CONSTIPATION
     Route: 065
     Dates: start: 20190131, end: 20190131
  22. OBINUTUZUMAB. [Suspect]
     Active Substance: OBINUTUZUMAB
     Indication: B-CELL LYMPHOMA
     Dosage: MOST RECENT DOSE AT 13:52
     Route: 042
     Dates: start: 20181220, end: 20181220
  23. LASIX [Concomitant]
     Active Substance: FUROSEMIDE
     Indication: FLUID RETENTION
     Route: 065
     Dates: start: 20190108, end: 20190108
  24. LASIX [Concomitant]
     Active Substance: FUROSEMIDE
     Route: 065
     Dates: start: 20190215, end: 20190215
  25. SOLU-MEDROL [Concomitant]
     Active Substance: METHYLPREDNISOLONE SODIUM SUCCINATE
     Route: 065
     Dates: start: 20181220, end: 20181220
  26. DENTIO [Concomitant]
     Dosage: DENTIO MOUTH WASH
     Route: 065
     Dates: start: 20181221
  27. ACTOSOLV [Concomitant]
     Route: 065
     Dates: start: 20190304, end: 20190304
  28. FLUCONAZOLE. [Concomitant]
     Active Substance: FLUCONAZOLE
     Indication: ANTIFUNGAL PROPHYLAXIS
     Route: 065
     Dates: start: 20181220
  29. ZOVIRAX [Concomitant]
     Active Substance: ACYCLOVIR
     Dosage: PROPHYLAXIS H ZOSTER INFECTION
     Route: 065
     Dates: start: 20190211, end: 20190211
  30. SOLU-MEDROL [Concomitant]
     Active Substance: METHYLPREDNISOLONE SODIUM SUCCINATE
     Route: 065
     Dates: start: 20181227, end: 20181227
  31. CICALFATE [Concomitant]
     Indication: DRY SKIN
     Route: 065
     Dates: start: 20190214, end: 20190220
  32. TRAMADOL. [Concomitant]
     Active Substance: TRAMADOL
     Indication: PAIN
     Route: 065
     Dates: start: 20181228, end: 20181228
  33. ALLOPURINOL. [Concomitant]
     Active Substance: ALLOPURINOL
     Indication: PROPHYLAXIS
     Route: 065
     Dates: start: 20181221
  34. MEDROL [Concomitant]
     Active Substance: METHYLPREDNISOLONE
     Indication: PNEUMONIA
     Route: 065
     Dates: start: 201811, end: 20190213
  35. PRIMPERAN [Concomitant]
     Active Substance: METOCLOPRAMIDE HYDROCHLORIDE
     Indication: NAUSEA
     Route: 065
     Dates: start: 20171106, end: 20181220
  36. MOVICOL [Concomitant]
     Active Substance: POLYETHYLENE GLYCOL 3350\POTASSIUM CHLORIDE\SODIUM BICARBONATE\SODIUM CHLORIDE
     Route: 065
     Dates: start: 20190107, end: 20190107
  37. BACTRIM [Concomitant]
     Active Substance: SULFAMETHOXAZOLE\TRIMETHOPRIM
     Indication: ANTIFUNGAL PROPHYLAXIS
     Route: 065
     Dates: start: 20160331
  38. LYRICA [Concomitant]
     Active Substance: PREGABALIN
     Indication: NEUROPATHY PERIPHERAL
     Route: 065
     Dates: start: 20180524
  39. DIFLUCAN [Concomitant]
     Active Substance: FLUCONAZOLE
     Indication: ANTIFUNGAL PROPHYLAXIS
     Route: 065
     Dates: start: 20181126, end: 20181220
  40. ZYLORIC [Concomitant]
     Active Substance: ALLOPURINOL
     Indication: PROPHYLAXIS
     Route: 065
     Dates: start: 201410, end: 20181220
  41. TAVEGYL [Concomitant]
     Active Substance: CLEMASTINE FUMARATE
     Indication: PREMEDICATION
     Route: 065
     Dates: start: 20190117, end: 20190117
  42. PARACETAMOL [Concomitant]
     Active Substance: ACETAMINOPHEN
     Route: 065
     Dates: start: 20181220, end: 20181220
  43. CICALFATE [Concomitant]
     Indication: SKIN IRRITATION
     Route: 065
     Dates: start: 20190107, end: 20190111
  44. ACICLOVIR [Concomitant]
     Active Substance: ACYCLOVIR
     Route: 065
     Dates: start: 20181221
  45. DENTIO [Concomitant]
     Route: 065
     Dates: start: 20181227, end: 20190112
  46. CITANEST [PRILOCAINE HYDROCHLORIDE] [Concomitant]
     Route: 065
     Dates: start: 20181210, end: 20181210

REACTIONS (3)
  - Myopathy [Recovered/Resolved with Sequelae]
  - Bronchitis [Recovered/Resolved]
  - Myopathy [Not Recovered/Not Resolved]

NARRATIVE: CASE EVENT DATE: 20190118
